FAERS Safety Report 10018284 (Version 1)
Quarter: 2014Q1

REPORT INFORMATION
  Report Type: Spontaneous
  Country: US (occurrence: US)
  Receive Date: 20140318
  Receipt Date: 20140318
  Transmission Date: 20141002
  Serious: Yes (Other)
  Sender: FDA-Public Use
  Company Number: US-BRISTOL-MYERS SQUIBB COMPANY-19850577

PATIENT
  Sex: Male

DRUGS (10)
  1. ERBITUX [Suspect]
     Indication: HEAD AND NECK CANCER
  2. ERBITUX [Suspect]
     Indication: OROPHARYNGEAL CANCER
  3. CISPLATIN [Concomitant]
     Indication: HEAD AND NECK CANCER
  4. CISPLATIN [Concomitant]
     Indication: OROPHARYNGEAL CANCER
  5. TAXOTERE [Concomitant]
     Indication: HEAD AND NECK CANCER
  6. TAXOTERE [Concomitant]
     Indication: OROPHARYNGEAL CANCER
  7. DEXAMETHASONE [Concomitant]
  8. PEPCID [Concomitant]
  9. BENADRYL [Concomitant]
  10. ALBUTEROL [Concomitant]

REACTIONS (1)
  - Anaphylactic reaction [Unknown]
